FAERS Safety Report 15525161 (Version 2)
Quarter: 2019Q1

REPORT INFORMATION
  Report Type: Spontaneous
  Country: BR (occurrence: BR)
  Receive Date: 20181018
  Receipt Date: 20190306
  Transmission Date: 20190417
  Serious: Yes (Hospitalization, Other)
  Sender: FDA-Public Use
  Company Number: BR-BRISTOL-MYERS SQUIBB COMPANY-BMS-2018-094856

PATIENT
  Age: 87 Year
  Sex: Male

DRUGS (3)
  1. ALENIA                             /01479302/ [Concomitant]
     Indication: PRODUCT USED FOR UNKNOWN INDICATION
     Route: 065
  2. COMBODART [Concomitant]
     Active Substance: DUTASTERIDE\TAMSULOSIN
     Indication: PRODUCT USED FOR UNKNOWN INDICATION
     Route: 065
  3. ELIQUIS [Suspect]
     Active Substance: APIXABAN
     Indication: CEREBROVASCULAR ACCIDENT PROPHYLAXIS
     Dosage: 1 TAB, DAILY
     Route: 065

REACTIONS (7)
  - Influenza [Recovered/Resolved]
  - Chronic obstructive pulmonary disease [Unknown]
  - Pneumonia [Recovered/Resolved]
  - Off label use [Unknown]
  - Chronic kidney disease [Unknown]
  - Cardiac disorder [Unknown]
  - Renal failure [Unknown]

NARRATIVE: CASE EVENT DATE: 201709
